FAERS Safety Report 21455156 (Version 1)
Quarter: 2022Q4

REPORT INFORMATION
  Report Type: Spontaneous
  Country: JP (occurrence: JP)
  Receive Date: 20221014
  Receipt Date: 20221014
  Transmission Date: 20230113
  Serious: Yes (Death, Other)
  Sender: FDA-Public Use
  Company Number: JP-NOVARTISPH-NVSJ2022JP099061

PATIENT
  Sex: Male

DRUGS (5)
  1. ARRANON [Suspect]
     Active Substance: NELARABINE
     Indication: Acute lymphocytic leukaemia recurrent
     Dosage: UNK
     Route: 041
  2. DOXORUBICIN HYDROCHLORIDE [Suspect]
     Active Substance: DOXORUBICIN HYDROCHLORIDE
     Indication: Acute lymphocytic leukaemia
     Dosage: UNK
     Route: 041
  3. CYCLOPHOSPHAMIDE [Suspect]
     Active Substance: CYCLOPHOSPHAMIDE
     Indication: Acute lymphocytic leukaemia recurrent
     Route: 065
  4. VINCRISTINE [Suspect]
     Active Substance: VINCRISTINE
     Indication: Acute lymphocytic leukaemia recurrent
     Route: 065
  5. PREDNISOLONE [Suspect]
     Active Substance: PREDNISOLONE
     Indication: Acute lymphocytic leukaemia recurrent
     Route: 065

REACTIONS (9)
  - Acute lymphocytic leukaemia recurrent [Fatal]
  - Malignant neoplasm progression [Fatal]
  - Lung infiltration [Fatal]
  - Pleural effusion [Fatal]
  - Oxygen saturation decreased [Fatal]
  - Depressed level of consciousness [Unknown]
  - Bradycardia [Unknown]
  - Drug ineffective [Unknown]
  - General physical health deterioration [Unknown]
